FAERS Safety Report 26104354 (Version 1)
Quarter: 2025Q4

REPORT INFORMATION
  Report Type: Spontaneous
  Country: KR (occurrence: KR)
  Receive Date: 20251130
  Receipt Date: 20251130
  Transmission Date: 20260118
  Serious: Yes (Death, Life-Threatening, Other)
  Sender: BRACCO
  Company Number: KR-BRACCO-2024KR06915

PATIENT
  Age: 60 Year
  Sex: Female

DRUGS (1)
  1. IOMERON [Suspect]
     Active Substance: IOMEPROL
     Indication: Computerised tomogram
     Dosage: 150 ML, SINGLE
     Dates: start: 20241029, end: 20241029

REACTIONS (2)
  - Cardiac arrest [Fatal]
  - Anaphylactic shock [Fatal]

NARRATIVE: CASE EVENT DATE: 20241029
